FAERS Safety Report 7597277-0 (Version None)
Quarter: 2011Q3

REPORT INFORMATION
  Report Type: 
  Country: None (occurrence: None)
  Receive Date: 20110708
  Receipt Date: 20110209
  Transmission Date: 20111222
  Serious: No
  Sender: FDA-Public Use
  Company Number: US-GLAXOSMITHKLINE-A0912693A

PATIENT
  Age: 72 Year
  Sex: Female

DRUGS (12)
  1. NEXIUM [Concomitant]
  2. POTASSIUM [Concomitant]
  3. LASIX [Concomitant]
  4. METOPROLOL TARTRATE [Concomitant]
  5. FLOVENT [Suspect]
     Indication: CHRONIC OBSTRUCTIVE PULMONARY DISEASE
     Dosage: 2PUFF TWICE PER DAY
     Route: 055
     Dates: start: 20101101
  6. CARAFATE [Concomitant]
  7. FIORICET [Concomitant]
  8. PROAIR HFA [Concomitant]
  9. MAXALT [Concomitant]
  10. VALIUM [Concomitant]
  11. ASPIRIN [Concomitant]
  12. RESTASIS [Concomitant]

REACTIONS (7)
  - ABDOMINAL PAIN UPPER [None]
  - TONGUE ULCERATION [None]
  - GINGIVAL PAIN [None]
  - ORAL PAIN [None]
  - ALOPECIA [None]
  - MIGRAINE [None]
  - RHINORRHOEA [None]
